FAERS Safety Report 4447536-5 (Version None)
Quarter: 2004Q3

REPORT INFORMATION
  Report Type: 
  Country: None (occurrence: None)
  Receive Date: 20040823
  Receipt Date: 20040604
  Transmission Date: 20050211
  Serious: No
  Sender: FDA-Public Use
  Company Number: PHEH2004US06172

PATIENT
  Age: 14 Year
  Sex: Female

DRUGS (1)
  1. ZELNORM [Suspect]
     Indication: IMPAIRED GASTRIC EMPTYING
     Dosage: 6 MG, BID, ORAL
     Route: 048
     Dates: start: 20040401

REACTIONS (3)
  - ANGER [None]
  - IRRITABILITY [None]
  - MOOD ALTERED [None]
